FAERS Safety Report 7376124-6 (Version None)
Quarter: 2011Q1

REPORT INFORMATION
  Report Type: 
  Country: None (occurrence: None)
  Receive Date: 20110325
  Receipt Date: 20110321
  Transmission Date: 20110831
  Serious: Yes (Hospitalization)
  Sender: FDA-Public Use
  Company Number: CHNY2011GB00446

PATIENT
  Age: 49 Year
  Sex: Female

DRUGS (5)
  1. PETHIDINE [Suspect]
     Dosage: 300 MG, ONCE/SINGLE
  2. AMITRIPTYLINE [Suspect]
     Dosage: 420 MG, ONCE/SINGLE
  3. NIZATIDINE [Suspect]
     Dosage: 1.2 G, ONCE/SINGLE
  4. IBUPROFEN [Suspect]
     Dosage: 120 MG, ONCE/SINGLE
  5. DIAZEPAM [Suspect]
     Dosage: 26 MG, ONCE/SINGLE

REACTIONS (8)
  - RESPIRATORY RATE DECREASED [None]
  - BLOOD PRESSURE DECREASED [None]
  - PO2 INCREASED [None]
  - MULTIPLE DRUG OVERDOSE INTENTIONAL [None]
  - SOMNOLENCE [None]
  - PCO2 INCREASED [None]
  - BLOOD PH DECREASED [None]
  - LOSS OF CONSCIOUSNESS [None]
